FAERS Safety Report 6309175-0 (Version None)
Quarter: 2009Q3

REPORT INFORMATION
  Report Type: 
  Country: None (occurrence: None)
  Receive Date: 20090814
  Receipt Date: 20090608
  Transmission Date: 20100115
  Serious: No
  Sender: FDA-Public Use
  Company Number: A0789384A

PATIENT
  Age: 66 Year
  Sex: Female

DRUGS (6)
  1. COREG CR [Suspect]
     Indication: LEFT VENTRICULAR DYSFUNCTION
     Dosage: 20MG PER DAY
     Route: 048
     Dates: start: 20070101
  2. UNKNOWN MEDICATION [Concomitant]
  3. ASPIRIN [Concomitant]
  4. VITAMIN D3 [Concomitant]
  5. M.V.I. [Concomitant]
  6. COQ10 [Concomitant]

REACTIONS (7)
  - BLOOD GLUCOSE INCREASED [None]
  - BLOOD THYROID STIMULATING HORMONE INCREASED [None]
  - DEPRESSION [None]
  - FATIGUE [None]
  - INSOMNIA [None]
  - IRRITABILITY [None]
  - NERVOUSNESS [None]
